FAERS Safety Report 8859281 (Version 1)
Quarter: 2012Q4

REPORT INFORMATION
  Report Type: 
  Country: MX (occurrence: MX)
  Receive Date: 20121024
  Receipt Date: 20121024
  Transmission Date: 20130627
  Serious: Yes (Hospitalization, Other)
  Sender: FDA-Public Use
  Company Number: MX-UCBSA-069149

PATIENT
  Age: 17 Year
  Sex: Female
  Weight: 51 kg

DRUGS (2)
  1. KEPPRA [Suspect]
     Indication: EPILEPSY
     Route: 048
     Dates: start: 20110404
  2. NONE [Concomitant]

REACTIONS (3)
  - Grand mal convulsion [Recovered/Resolved]
  - Drug-induced liver injury [Not Recovered/Not Resolved]
  - Cholelithiasis [Not Recovered/Not Resolved]
